FAERS Safety Report 4921542-6 (Version None)
Quarter: 2006Q1

REPORT INFORMATION
  Report Type: 
  Country: None (occurrence: None)
  Receive Date: 20060224
  Receipt Date: 20060220
  Transmission Date: 20060701
  Serious: Yes (Other)
  Sender: FDA-Public Use
  Company Number: PHRM2006FR00834

PATIENT
  Age: 77 Year
  Sex: Male

DRUGS (5)
  1. GLEEVEC [Suspect]
     Indication: CHRONIC MYELOID LEUKAEMIA
     Dosage: 600 MG DAILY
     Route: 048
     Dates: start: 20051115
  2. CORDARONE [Concomitant]
     Dosage: 3 DF PER WEEK
     Route: 048
  3. TRIATEC [Concomitant]
     Dosage: 2.5 MG, QD
     Route: 048
  4. ASPEGIC 325 [Concomitant]
     Dosage: 250 MG, QD
     Route: 048
  5. DYSALFA [Concomitant]
     Dosage: 1 DF, QD

REACTIONS (5)
  - CONJUNCTIVITIS [None]
  - DERMATITIS EXFOLIATIVE [None]
  - DRY MOUTH [None]
  - PRURITUS [None]
  - SKIN DISORDER [None]
